FAERS Safety Report 9585444 (Version 1)
Quarter: 2013Q4

REPORT INFORMATION
  Report Type: Spontaneous
  Country: US (occurrence: US)
  Receive Date: 20131002
  Receipt Date: 20131002
  Transmission Date: 20140711
  Serious: Yes (Other)
  Sender: FDA-Public Use
  Company Number: US-BRISTOL-MYERS SQUIBB COMPANY-19412774

PATIENT
  Age: 60 Year
  Sex: Female
  Weight: 69.39 kg

DRUGS (2)
  1. COUMADIN [Suspect]
     Dosage: TAKEN 11,12,8,6-UNITS NOS
  2. WARFARIN SODIUM [Suspect]

REACTIONS (6)
  - Deep vein thrombosis [Unknown]
  - Convulsion [Unknown]
  - Transient ischaemic attack [Unknown]
  - Parathyroid tumour [Unknown]
  - Neuropathy peripheral [Unknown]
  - Infection [Unknown]
